FAERS Safety Report 5831273-6 (Version None)
Quarter: 2008Q3

REPORT INFORMATION
  Report Type: 
  Country: None (occurrence: None)
  Receive Date: 20080801
  Receipt Date: 20080728
  Transmission Date: 20090109
  Serious: Yes (Other)
  Sender: FDA-Public Use
  Company Number: US-BOEHRINGER INGELHEIM GMBH, GERMANY-2008-BP-11786RO

PATIENT
  Age: 56 Year
  Sex: Female
  Weight: 48 kg

DRUGS (10)
  1. PREDNISONE [Suspect]
     Indication: ADRENAL INSUFFICIENCY
     Route: 048
  2. PREDNISONE [Suspect]
     Indication: ASTHMA
     Route: 048
  3. PREDNISONE [Suspect]
     Indication: COLITIS ULCERATIVE
     Route: 048
  4. PREDNISONE [Suspect]
     Route: 048
     Dates: start: 20080203, end: 20080203
  5. MERCAPTOPURINE [Concomitant]
  6. FOSAMAX [Concomitant]
  7. ESTRADIOL [Concomitant]
  8. NEXIUM [Concomitant]
     Indication: DYSPEPSIA
  9. NEXIUM [Concomitant]
  10. PREDNISONE [Concomitant]

REACTIONS (8)
  - ADRENAL INSUFFICIENCY [None]
  - COLITIS ULCERATIVE [None]
  - CUSHINGOID [None]
  - DRUG INEFFECTIVE [None]
  - DYSPEPSIA [None]
  - ENERGY INCREASED [None]
  - IRRITABILITY [None]
  - WEIGHT INCREASED [None]
